FAERS Safety Report 13952967 (Version 1)
Quarter: 2017Q3

REPORT INFORMATION
  Report Type: Report from Study
  Country: None (occurrence: GR)
  Receive Date: 20170911
  Receipt Date: 20170911
  Transmission Date: 20171128
  Serious: Yes (Hospitalization, Other)
  Sender: FDA-Public Use
  Company Number: GR-ABBVIE-17K-066-2096691-00

PATIENT
  Sex: Female
  Weight: 87 kg

DRUGS (4)
  1. QUETIAPINE. [Concomitant]
     Active Substance: QUETIAPINE
     Indication: DEPRESSION
     Route: 048
  2. DUODOPA [Suspect]
     Active Substance: CARBIDOPA\LEVODOPA
     Indication: PARKINSON^S DISEASE
     Dosage: MORNING DOSE: 13.0ML; CONTINUOUS RATE: 3.8ML/H ; EXTRA DOSE: 1.8ML (1-2 TIMES PER DAY)
     Route: 050
     Dates: start: 20150928
  3. CLONOTRIL [Concomitant]
     Active Substance: CLONAZEPAM
     Indication: PRODUCT USED FOR UNKNOWN INDICATION
     Route: 048
  4. MEDOPEXOL [Concomitant]
     Indication: PARKINSON^S DISEASE
     Route: 048

REACTIONS (2)
  - Computerised tomogram thorax abnormal [Not Recovered/Not Resolved]
  - Renal mass [Not Recovered/Not Resolved]
